FAERS Safety Report 24358881 (Version 1)
Quarter: 2024Q3

REPORT INFORMATION
  Report Type: Spontaneous
  Country: US (occurrence: US)
  Receive Date: 20240924
  Receipt Date: 20240924
  Transmission Date: 20241016
  Serious: Yes (Other)
  Sender: DR REDDYS
  Company Number: US-DRL-USA-SPO/USA/24/0013714

PATIENT
  Sex: Female
  Weight: 55 kg

DRUGS (2)
  1. TAMOXIFEN CITRATE [Suspect]
     Active Substance: TAMOXIFEN CITRATE
     Indication: Breast cancer
     Route: 065
     Dates: start: 20240101
  2. GABAPENTIN [Concomitant]
     Active Substance: GABAPENTIN
     Indication: Product used for unknown indication
     Route: 065

REACTIONS (6)
  - Cataract [Unknown]
  - Joint swelling [Not Recovered/Not Resolved]
  - Alopecia [Unknown]
  - Dark circles under eyes [Unknown]
  - Osteopenia [Unknown]
  - Dry eye [Unknown]

NARRATIVE: CASE EVENT DATE: 20240201
